FAERS Safety Report 5076441-9 (Version None)
Quarter: 2006Q3

REPORT INFORMATION
  Report Type: 
  Country: None (occurrence: None)
  Receive Date: 20060725
  Receipt Date: 20060407
  Transmission Date: 20061208
  Serious: No
  Sender: FDA-Public Use
  Company Number: 200612355BWH

PATIENT
  Age: 44 Year
  Sex: Male

DRUGS (8)
  1. NEXAVAR [Suspect]
     Indication: RENAL CELL CARCINOMA STAGE UNSPECIFIED
     Dosage: 400 MG, BID, ORAL
     Route: 048
     Dates: start: 20060405
  2. CLONIDINE [Concomitant]
  3. TOPROL-XL [Concomitant]
  4. FLUOXETINE [Concomitant]
  5. COMPAZINE [Concomitant]
  6. HYDROCODONE BITARTRATE [Concomitant]
  7. PREDNISONE TAB [Concomitant]
  8. OXYGEN [Concomitant]

REACTIONS (1)
  - FATIGUE [None]
